FAERS Safety Report 8413602-2 (Version None)
Quarter: 2012Q2

REPORT INFORMATION
  Report Type: 
  Country: None (occurrence: None)
  Receive Date: 20120605
  Receipt Date: 20120522
  Transmission Date: 20120825
  Serious: Yes (Death)
  Sender: FDA-Public Use
  Company Number: CN-ROCHE-1074065

PATIENT

DRUGS (6)
  1. CELLCEPT [Suspect]
     Indication: PROPHYLAXIS AGAINST GRAFT VERSUS HOST DISEASE
     Dosage: DAYS +7 TO +35
     Route: 048
  2. ZENAPAX [Suspect]
     Indication: PROPHYLAXIS AGAINST GRAFT VERSUS HOST DISEASE
     Dosage: ON DAY 0 (2 HOURS BEFORE TRANSPLANTATION) AND DAY +4
     Route: 042
  3. BASILIXIMAB [Suspect]
     Indication: PROPHYLAXIS AGAINST GRAFT VERSUS HOST DISEASE
     Dosage: ON DAY 0 (2 HOURS BEFORE TRANSPLANTATION) AND DAY +4
     Route: 042
  4. METHOTREXATE [Concomitant]
     Dosage: ON DAYS +3, +6 AND +11
     Route: 042
  5. METHOTREXATE [Concomitant]
     Indication: PROPHYLAXIS AGAINST GRAFT VERSUS HOST DISEASE
     Dosage: ON DAY +1
     Route: 042
  6. CYCLOSPORINE [Suspect]
     Indication: PROPHYLAXIS AGAINST GRAFT VERSUS HOST DISEASE
     Dosage: ON DAY -1

REACTIONS (2)
  - PNEUMONIA BACTERIAL [None]
  - FUNGAL INFECTION [None]
